FAERS Safety Report 12073318 (Version 1)
Quarter: 2016Q1

REPORT INFORMATION
  Report Type: Spontaneous
  Country: FR (occurrence: FR)
  Receive Date: 20160212
  Receipt Date: 20160212
  Transmission Date: 20160526
  Serious: Yes (Hospitalization)
  Sender: FDA-Public Use
  Company Number: FR-TEVA-632958ISR

PATIENT
  Age: 13 Year
  Sex: Female

DRUGS (6)
  1. ETOPOSIDE TEVA [Suspect]
     Active Substance: ETOPOSIDE
     Route: 042
     Dates: start: 20160113, end: 20160114
  2. IFOSFAMIDE EG [Suspect]
     Active Substance: IFOSFAMIDE
     Route: 042
     Dates: start: 20160113, end: 20160115
  3. VINCRISTINE TEVA [Suspect]
     Active Substance: VINCRISTINE
     Dosage: THIRD COURSE OF VIDE PROTOCOLE (VINCRISTINE, IFOSFAMIDE, DOXORUBICIN, ETOPOSIDE)
     Route: 042
     Dates: start: 20160113, end: 20160113
  4. PLITICAN [Suspect]
     Active Substance: ALIZAPRIDE HYDROCHLORIDE
     Dosage: 5 MG/KG DAILY;
     Route: 042
     Dates: start: 20160115, end: 20160116
  5. ADRIBLASTINE [Suspect]
     Active Substance: DOXORUBICIN
     Dosage: 32 MILLIGRAM DAILY; THIRD COURSE OF VIDE PROTOCOLE (VINCRISTINE, IFOSFAMIDE, DOXORUBICIN, ETOPOSIDE)
     Route: 042
     Dates: start: 20160113, end: 20160115
  6. EMEND [Suspect]
     Active Substance: APREPITANT
     Dosage: 80 MILLIGRAM DAILY;
     Route: 048
     Dates: start: 20160115, end: 20160116

REACTIONS (3)
  - Diplopia [Recovered/Resolved]
  - Hyperreflexia [Recovered/Resolved]
  - Cerebellar syndrome [Recovered/Resolved]

NARRATIVE: CASE EVENT DATE: 20160115
